FAERS Safety Report 7409997-9 (Version None)
Quarter: 2011Q2

REPORT INFORMATION
  Report Type: 
  Country: None (occurrence: None)
  Receive Date: 20110404
  Receipt Date: 20110323
  Transmission Date: 20111010
  Serious: Yes (Other)
  Sender: FDA-Public Use
  Company Number: 022447

PATIENT
  Sex: Female
  Weight: 48.5 kg

DRUGS (2)
  1. CIMZIA [Suspect]
     Indication: CROHN'S DISEASE
     Dosage: (SUBCUTANEOUS)
     Route: 058
     Dates: start: 20101108, end: 20101201
  2. INFED [Suspect]
     Indication: IRON DEFICIENCY
     Dosage: (500MG/ML INTRAVENOUS (NOT OTHERWISE SPECIFIED))
     Route: 042
     Dates: start: 20101118, end: 20101118

REACTIONS (7)
  - ARTHRALGIA [None]
  - INFUSION RELATED REACTION [None]
  - NECK PAIN [None]
  - CROHN'S DISEASE [None]
  - PAIN IN JAW [None]
  - PSORIATIC ARTHROPATHY [None]
  - ANAPHYLACTIC REACTION [None]
